FAERS Safety Report 7185333-0 (Version None)
Quarter: 2010Q4

REPORT INFORMATION
  Report Type: 
  Country: None (occurrence: None)
  Receive Date: 20101222
  Receipt Date: 20100602
  Transmission Date: 20110411
  Serious: No
  Sender: FDA-Public Use
  Company Number: US-AMGEN-KDL416151

PATIENT

DRUGS (1)
  1. ENBREL [Suspect]
     Indication: RHEUMATOID ARTHRITIS
     Dosage: 50 MG, QWK
     Route: 058
     Dates: start: 20080101

REACTIONS (6)
  - DIZZINESS [None]
  - HEADACHE [None]
  - INJECTION SITE PAIN [None]
  - RHINORRHOEA [None]
  - SINUSITIS [None]
  - SPUTUM DISCOLOURED [None]
